FAERS Safety Report 6124556-6 (Version None)
Quarter: 2009Q1

REPORT INFORMATION
  Report Type: 
  Country: None (occurrence: None)
  Receive Date: 20090319
  Receipt Date: 20090316
  Transmission Date: 20090719
  Serious: Yes (Hospitalization)
  Sender: FDA-Public Use
  Company Number: US-MERCK-0903USA00336

PATIENT
  Age: 61 Year
  Sex: Male

DRUGS (4)
  1. COZAAR [Suspect]
     Indication: HYPERTENSION
     Route: 048
     Dates: start: 20010101
  2. METOPROLOL [Concomitant]
     Route: 065
  3. PROCARDIA [Concomitant]
     Route: 065
  4. CATAPRES [Concomitant]
     Route: 065

REACTIONS (2)
  - INFECTION [None]
  - RENAL DISORDER [None]
